FAERS Safety Report 16807298 (Version 4)
Quarter: 2019Q4

REPORT INFORMATION
  Report Type: Spontaneous
  Country: US (occurrence: US)
  Receive Date: 20190913
  Receipt Date: 20191015
  Transmission Date: 20200122
  Serious: Yes (Hospitalization, Other)
  Sender: FDA-Public Use
  Company Number: US-ALLERGAN-1936452US

PATIENT
  Sex: Male

DRUGS (4)
  1. ACTIGALL [Suspect]
     Active Substance: URSODIOL
     Indication: LIVER DISORDER
     Dosage: 300 MG
     Route: 048
     Dates: start: 20190712
  2. DANTROLENE. [Suspect]
     Active Substance: DANTROLENE SODIUM
     Indication: MUSCLE SPASMS
     Dosage: ACTUAL: 6 A DAY
     Route: 048
  3. ZANAFLEX [Concomitant]
     Active Substance: TIZANIDINE HYDROCHLORIDE
     Indication: PRODUCT USED FOR UNKNOWN INDICATION
  4. BACLOFEN. [Concomitant]
     Active Substance: BACLOFEN
     Indication: PRODUCT USED FOR UNKNOWN INDICATION

REACTIONS (7)
  - Acute kidney injury [Recovering/Resolving]
  - Pain [Not Recovered/Not Resolved]
  - Contraindicated product administered [Unknown]
  - Renal impairment [Unknown]
  - Hypersensitivity [Recovered/Resolved]
  - Thrombosis [Unknown]
  - Overdose [Unknown]

NARRATIVE: CASE EVENT DATE: 20190712
